FAERS Safety Report 10235456 (Version 1)
Quarter: 2014Q2

REPORT INFORMATION
  Report Type: Spontaneous
  Country: US (occurrence: US)
  Receive Date: 20140613
  Receipt Date: 20140613
  Transmission Date: 20141212
  Serious: Yes (Hospitalization)
  Sender: FDA-Public Use
  Company Number: US-B.I. PHARMACEUTICALS,INC./RIDGEFIELD-2014-BI-26208BP

PATIENT
  Sex: Female
  Weight: 77 kg

DRUGS (12)
  1. SPIRIVA [Suspect]
     Indication: CHRONIC OBSTRUCTIVE PULMONARY DISEASE
     Dosage: 18 MCG
     Route: 055
     Dates: start: 2010
  2. ADVAIR DISKUS [Concomitant]
     Indication: CHRONIC OBSTRUCTIVE PULMONARY DISEASE
     Dosage: FORMULATION: INHALATION SPRAY  STRENGTH: 250/50 MCG; DAILY DOSE: 500/100 MCG
     Route: 055
     Dates: start: 2010
  3. LEVOTHYROXINE [Concomitant]
     Indication: HYPOTHYROIDISM
     Dosage: 0.112 MCG
     Route: 048
  4. LIOTHYRONINE [Concomitant]
     Indication: HYPOTHYROIDISM
     Dosage: 5 MCG
     Route: 048
  5. GABAPENTIN [Concomitant]
     Indication: MIGRAINE
     Dosage: 1200 MG
     Route: 048
     Dates: start: 2009
  6. PROMETHAZINE [Concomitant]
     Indication: NAUSEA
     Route: 048
     Dates: start: 2008
  7. METAXALONE [Concomitant]
     Indication: MUSCLE SPASMS
     Dosage: 800 MG
     Route: 048
     Dates: start: 2013
  8. POLYETHYLENE GLYCOL [Concomitant]
     Indication: CONSTIPATION
     Dosage: 350 MG
     Route: 048
  9. PATANASE [Concomitant]
     Indication: SINUS DISORDER
     Dosage: FORMULATION: NASAL SPRAY
     Route: 045
  10. PRO AIR HFA [Concomitant]
     Indication: CHRONIC OBSTRUCTIVE PULMONARY DISEASE
     Dosage: FORMULATION: INHALATION SPRAY
     Route: 055
  11. AMIODARONE [Concomitant]
     Indication: CARDIAC DISORDER
     Dosage: 200 MG
     Route: 048
  12. ELIQUIS [Concomitant]
     Indication: ATRIAL FIBRILLATION
     Dosage: 10 MG
     Route: 048

REACTIONS (4)
  - Arthritis [Recovered/Resolved]
  - Arthralgia [Not Recovered/Not Resolved]
  - Fall [Recovered/Resolved]
  - Sciatica [Not Recovered/Not Resolved]
